FAERS Safety Report 7359488-9 (Version None)
Quarter: 2011Q1

REPORT INFORMATION
  Report Type: 
  Country: None (occurrence: None)
  Receive Date: 20110317
  Receipt Date: 20091201
  Transmission Date: 20110831
  Serious: No
  Sender: FDA-Public Use
  Company Number: US-PFIZER INC-2009304824

PATIENT
  Sex: Male

DRUGS (2)
  1. AMLODIPINE BESYLATE [Suspect]
     Indication: BLOOD PRESSURE ABNORMAL
  2. LOVENOX [Suspect]
     Indication: HIP SURGERY
     Dosage: 40 MG, DAILY
     Route: 065
     Dates: start: 20091019

REACTIONS (1)
  - OEDEMA PERIPHERAL [None]
